FAERS Safety Report 8063164-7 (Version None)
Quarter: 2011Q4

REPORT INFORMATION
  Report Type: 
  Country: None (occurrence: None)
  Receive Date: 20111220
  Receipt Date: 20110731
  Transmission Date: 20120403
  Serious: Yes (Hospitalization)
  Sender: FDA-Public Use
  Company Number: PHHY2011US69757

PATIENT
  Age: 57 Year
  Sex: Male

DRUGS (4)
  1. MYFORTIC [Suspect]
     Indication: KIDNEY TRANSPLANT REJECTION
     Dosage: 1080 MG, QD, ORAL
     Route: 048
     Dates: start: 20100701
  2. TACROLIMUS [Concomitant]
  3. LISINOPRIL [Concomitant]
  4. TAMSULOSIN HCL [Concomitant]

REACTIONS (1)
  - HERPES ZOSTER [None]
